FAERS Safety Report 4880551-6 (Version None)
Quarter: 2005Q4

REPORT INFORMATION
  Report Type: 
  Country: None (occurrence: None)
  Receive Date: 20051223
  Receipt Date: 20051117
  Transmission Date: 20060501
  Serious: No
  Sender: FDA-Public Use
  Company Number: 05P-163-0317507-00

PATIENT
  Age: 50 Year
  Sex: Female
  Weight: 64.4108 kg

DRUGS (6)
  1. HUMIRA [Suspect]
     Indication: RHEUMATOID ARTHRITIS
     Dosage: 40 MG, 1 IN 2 WK, SUBCUTANEOUS
     Route: 058
     Dates: start: 20050701
  2. PREDNISONE [Concomitant]
  3. SULFAZINE [Concomitant]
  4. HYDROXYCHLOROQUINE PHOSPHATE [Concomitant]
  5. LEVETIRACETAM [Concomitant]
  6. AMITRIPTYLINE HCL [Concomitant]

REACTIONS (4)
  - DYSGEUSIA [None]
  - DYSPHONIA [None]
  - INJECTION SITE IRRITATION [None]
  - PHARYNGOLARYNGEAL PAIN [None]
